FAERS Safety Report 8695935 (Version 3)
Quarter: 2013Q4

REPORT INFORMATION
  Report Type: Spontaneous
  Country: US (occurrence: US)
  Receive Date: 20120801
  Receipt Date: 20131101
  Transmission Date: 20140711
  Serious: No
  Sender: FDA-Public Use
  Company Number: US-009507513-1207USA010007

PATIENT
  Age: 51 Year
  Sex: Female
  Weight: 86.17 kg

DRUGS (8)
  1. JANUMET [Suspect]
     Indication: DIABETES MELLITUS
     Dosage: 50MG/1000MG,TWICE DAILY
     Route: 048
     Dates: start: 201108, end: 20120719
  2. GEODON [Concomitant]
  3. PAXIL [Concomitant]
  4. LORATINE [Concomitant]
  5. GLIPIZIDE [Concomitant]
  6. MELOXICAM [Concomitant]
  7. LIPITOR [Concomitant]
  8. LEVEMIR [Concomitant]

REACTIONS (1)
  - Carbohydrate antigen 19-9 increased [Not Recovered/Not Resolved]
